FAERS Safety Report 8273678-2 (Version None)
Quarter: 2012Q2

REPORT INFORMATION
  Report Type: 
  Country: None (occurrence: None)
  Receive Date: 20120411
  Receipt Date: 20120312
  Transmission Date: 20120825
  Serious: No
  Sender: FDA-Public Use
  Company Number: US-TEVA-327556USA

PATIENT
  Sex: Male
  Weight: 90.8 kg

DRUGS (14)
  1. ALLOPURINOL [Concomitant]
     Dosage: 300 MILLIGRAM;
     Route: 048
     Dates: start: 20100101
  2. PANTOPRAZOLE [Concomitant]
     Indication: ABDOMINAL DISCOMFORT
     Dosage: 40 MILLIGRAM;
     Route: 048
  3. METOPROLOL TARTRATE [Concomitant]
     Indication: HEART RATE DECREASED
     Dosage: 25 MILLIGRAM;
     Route: 048
     Dates: start: 20090101
  4. CLOPIDOGREL [Concomitant]
     Indication: CORONARY ARTERY DISEASE
     Route: 048
     Dates: start: 20110101
  5. ATORVASTATIN CALCIUM [Concomitant]
     Indication: BLOOD CHOLESTEROL
     Dosage: 80 MILLIGRAM;
     Route: 048
  6. ZOLPIDEM [Concomitant]
     Indication: INSOMNIA
     Route: 048
     Dates: start: 20110101
  7. LOVAZA [Concomitant]
     Indication: BLOOD TRIGLYCERIDES
     Dosage: 2 GRAM;
     Route: 048
     Dates: start: 20110101
  8. METFORMIN HCL [Concomitant]
     Indication: DIABETES MELLITUS
     Dosage: 2000 MILLIGRAM;
     Route: 048
     Dates: start: 20050101
  9. INSULIN [Concomitant]
     Indication: DIABETES MELLITUS
     Route: 058
  10. NUVIGIL [Suspect]
     Indication: SLEEP APNOEA SYNDROME
     Dosage: 150 MILLIGRAM;
     Route: 048
     Dates: start: 20120309, end: 20120311
  11. FENOFIBRATE [Concomitant]
     Route: 048
     Dates: start: 20110101
  12. INSULIN GLARGINE [Concomitant]
     Indication: DIABETES MELLITUS
     Route: 058
  13. AMITRIPTYLINE HYDROCHLORIDE [Concomitant]
  14. MORNIFLUMATE [Concomitant]
     Indication: DYSURIA
     Dosage: .4 MILLIGRAM;
     Route: 048
     Dates: start: 20090101

REACTIONS (3)
  - ORAL DISCOMFORT [None]
  - FATIGUE [None]
  - HEART RATE INCREASED [None]
